FAERS Safety Report 13260348 (Version 3)
Quarter: 2017Q1

REPORT INFORMATION
  Report Type: Report from Study
  Country: CA (occurrence: CA)
  Receive Date: 20170222
  Receipt Date: 20170316
  Transmission Date: 20170428
  Serious: Yes (Other)
  Sender: FDA-Public Use
  Company Number: CA-TAKEDA-2016TUS022837

PATIENT
  Age: 54 Year
  Sex: Male

DRUGS (1)
  1. VEDOLIZUMAB [Suspect]
     Active Substance: VEDOLIZUMAB
     Indication: CROHN^S DISEASE
     Dosage: 300 MG, UNK
     Route: 042
     Dates: start: 20160127

REACTIONS (4)
  - Crohn^s disease [Unknown]
  - Therapeutic response decreased [Unknown]
  - Impaired healing [Unknown]
  - Heart rate increased [Unknown]

NARRATIVE: CASE EVENT DATE: 201612
